FAERS Safety Report 4380537-4 (Version None)
Quarter: 2004Q2

REPORT INFORMATION
  Report Type: 
  Country: None (occurrence: None)
  Receive Date: 20040614
  Receipt Date: 20040324
  Transmission Date: 20050107
  Serious: Yes (Other)
  Sender: FDA-Public Use
  Company Number: NSADSS2003018154

PATIENT
  Age: 22 Year
  Sex: Female
  Weight: 77.1115 kg

DRUGS (2)
  1. ORTHO TRI-CYCLEN LO [Suspect]
     Indication: ABDOMINAL PAIN
     Dosage: 1 DOSE (S), ORAL
     Route: 048
     Dates: start: 20021201, end: 20030301
  2. ORTHO TRI-CYCLEN LO [Suspect]
     Indication: ACNE
     Dosage: 1 DOSE (S), ORAL
     Route: 048
     Dates: start: 20021201, end: 20030301

REACTIONS (3)
  - ARTHRALGIA [None]
  - JOINT SWELLING [None]
  - LEUKOCYTOCLASTIC VASCULITIS [None]
